FAERS Safety Report 5736074-5 (Version None)
Quarter: 2008Q2

REPORT INFORMATION
  Report Type: 
  Country: None (occurrence: None)
  Receive Date: 20080513
  Receipt Date: 20080505
  Transmission Date: 20081010
  Serious: Yes (Other)
  Sender: FDA-Public Use
  Company Number: US-ROCHE-510776

PATIENT
  Age: 81 Year
  Sex: Male

DRUGS (12)
  1. BONIVA [Suspect]
     Indication: OSTEOPOROSIS
     Route: 048
     Dates: start: 20060401
  2. PLAVIX [Concomitant]
     Dosage: FREQUENCY REPORTED AS QD.
  3. ASPIRIN [Concomitant]
     Dosage: REPORTED AS 325 MG/DAY
  4. LEVOXYL [Concomitant]
     Dosage: FREQUENCY REPORTED AS 137 MCG/DAY.
  5. PRIMIDONE [Concomitant]
     Dosage: FREQUENCY REPORTED AS  50 MG/DAY.
  6. FOLIC ACID [Concomitant]
     Dosage: FREQUENCY REPORTED AS 400 MCG/DAY.
  7. CALCIUM/VITAMIN D [Concomitant]
     Dosage: REPORTED AS CALCIUM WITH D 1200 MG/DAY
  8. CALCIUM/VITAMIN D [Concomitant]
     Dosage: REPORTED AS CALCIUM WITH D 1200 MG/DAY
  9. LOVASTATIN [Concomitant]
     Dosage: FRQUENCY REPORTED AS 40 MG/DAY.
  10. FAMOTIDINE [Concomitant]
     Dosage: FREQUENCY REPORTED AS 20 MG/DAY.
  11. OMEPRAZOLE [Concomitant]
     Dosage: REPORTED AS OMAPROZOLE 20 MG/DAY.
  12. FOSAMAX [Concomitant]

REACTIONS (4)
  - ANGIOPLASTY [None]
  - GASTRITIS [None]
  - PAIN IN EXTREMITY [None]
  - PROSTATE CANCER [None]
